FAERS Safety Report 18507540 (Version 1)
Quarter: 2020Q4

REPORT INFORMATION
  Report Type: Spontaneous
  Country: FR (occurrence: FR)
  Receive Date: 20201116
  Receipt Date: 20201116
  Transmission Date: 20210114
  Serious: Yes (Hospitalization)
  Sender: FDA-Public Use
  Company Number: FR-PFIZER INC-2020447972

PATIENT
  Age: 50 Year
  Sex: Female

DRUGS (3)
  1. AZITHROMYCIN ANHYDROUS. [Suspect]
     Active Substance: AZITHROMYCIN ANHYDROUS
     Indication: RESPIRATORY TRACT INFECTION
     Dosage: 3 G, 1X/DAY
     Route: 048
     Dates: start: 20201020, end: 20201023
  2. PHOLCODINE [Suspect]
     Active Substance: PHOLCODINE
     Indication: RESPIRATORY TRACT INFECTION
     Dosage: UNK
     Route: 048
     Dates: start: 20201020, end: 20201023
  3. OXYMETAZOLINE HCL [Suspect]
     Active Substance: OXYMETAZOLINE HYDROCHLORIDE
     Indication: RESPIRATORY TRACT INFECTION
     Dosage: UNK
     Route: 045
     Dates: start: 20201020, end: 20201023

REACTIONS (4)
  - Pruritus [Recovering/Resolving]
  - Off label use [Unknown]
  - Rash maculo-papular [Recovering/Resolving]
  - Product use issue [Unknown]

NARRATIVE: CASE EVENT DATE: 20201020
